FAERS Safety Report 12215712 (Version 4)
Quarter: 2017Q2

REPORT INFORMATION
  Report Type: Report from Study
  Country: None (occurrence: BR)
  Receive Date: 20160328
  Receipt Date: 20170501
  Transmission Date: 20170830
  Serious: Yes (Disabling, Other)
  Sender: FDA-Public Use
  Company Number: BR-ABBVIE-16K-020-1591020-00

PATIENT
  Age: 65 Year
  Sex: Female
  Weight: 73 kg

DRUGS (21)
  1. LOSARTAN. [Concomitant]
     Active Substance: LOSARTAN
     Indication: HYPERTENSION
     Route: 048
  2. LOSARTAN. [Concomitant]
     Active Substance: LOSARTAN
     Route: 048
  3. OMEGA 3 [Concomitant]
     Active Substance: OMEGA-3 FATTY ACIDS
     Indication: CARDIAC DISORDER
  4. GINKGO BILOBA [Concomitant]
     Active Substance: GINKGO
     Indication: LABYRINTHITIS
  5. OMEGA 3 [Concomitant]
     Active Substance: OMEGA-3 FATTY ACIDS
     Indication: CEREBRAL DISORDER
  6. HUMIRA [Suspect]
     Active Substance: ADALIMUMAB
     Route: 058
  7. GINKGO BILOBA [Concomitant]
     Active Substance: GINKGO
     Indication: HYPERTENSION
     Route: 048
     Dates: start: 1988
  8. PREDNISONE. [Concomitant]
     Active Substance: PREDNISONE
     Indication: ARTHRITIS
     Route: 048
  9. OXCARBAZEPINE. [Concomitant]
     Active Substance: OXCARBAZEPINE
     Indication: PROPHYLAXIS
     Route: 048
  10. NIMESULIDE [Concomitant]
     Active Substance: NIMESULIDE
     Indication: ARTHRALGIA
     Route: 048
     Dates: start: 2014
  11. HUMIRA [Suspect]
     Active Substance: ADALIMUMAB
     Indication: RHEUMATOID ARTHRITIS
     Route: 058
     Dates: start: 20120712
  12. CONCARDIO [Concomitant]
     Active Substance: BISOPROLOL FUMARATE
     Route: 048
     Dates: start: 2016
  13. HYDROCHLOROTHIAZIDE. [Concomitant]
     Active Substance: HYDROCHLOROTHIAZIDE
     Indication: HYPERTENSION
     Route: 048
  14. CONCARDIO [Concomitant]
     Active Substance: BISOPROLOL FUMARATE
     Indication: HYPERTENSION
     Route: 048
     Dates: start: 201510
  15. GARDENAL [Concomitant]
     Active Substance: PHENOBARBITAL
     Indication: CEREBRAL DISORDER
     Route: 048
  16. GARDENAL [Concomitant]
     Active Substance: PHENOBARBITAL
     Route: 048
  17. VERTIX [Concomitant]
     Indication: DIZZINESS
     Route: 048
     Dates: end: 20170423
  18. DORIL [Concomitant]
     Indication: PAIN
     Route: 048
  19. OMEGA 3 [Concomitant]
     Active Substance: OMEGA-3 FATTY ACIDS
     Indication: ARTHRITIS
     Route: 048
     Dates: start: 2012
  20. LABIRIN [Concomitant]
     Active Substance: BETAHISTINE
     Indication: LABYRINTHITIS
     Route: 048
     Dates: start: 20170424
  21. OXCARBAZEPINE. [Concomitant]
     Active Substance: OXCARBAZEPINE
     Indication: CEREBRAL DISORDER
     Route: 048
     Dates: start: 2015

REACTIONS (10)
  - Fall [Recovered/Resolved]
  - Rib fracture [Unknown]
  - Arthralgia [Unknown]
  - Fall [Unknown]
  - Bedridden [Unknown]
  - Rib fracture [Recovered/Resolved]
  - Speech disorder [Unknown]
  - Balance disorder [Unknown]
  - Weight increased [Unknown]
  - Pain [Unknown]

NARRATIVE: CASE EVENT DATE: 2016
